FAERS Safety Report 11118604 (Version 1)
Quarter: 2015Q2

REPORT INFORMATION
  Report Type: Spontaneous
  Country: US (occurrence: None)
  Receive Date: 20150515
  Receipt Date: 20150515
  Transmission Date: 20150821
  Serious: No
  Sender: FDA-Public Use
  Company Number: None

PATIENT
  Age: 28 Year
  Sex: Female
  Weight: 64.41 kg

DRUGS (5)
  1. VITAMIN D [Concomitant]
     Active Substance: CHOLECALCIFEROL
  2. CELEBREX [Suspect]
     Active Substance: CELECOXIB
     Indication: SCIATICA
     Dosage: TAKEN BY MOUTH
  3. CELEBREX [Suspect]
     Active Substance: CELECOXIB
     Indication: LIGAMENT PAIN
     Dosage: TAKEN BY MOUTH
  4. LIQUID CALCIUM SUPPLEMENT [Concomitant]
  5. ALIVE [Concomitant]

REACTIONS (6)
  - Skin reaction [None]
  - Gastrointestinal pain [None]
  - Menstruation delayed [None]
  - Weight increased [None]
  - Peripheral swelling [None]
  - Acne [None]

NARRATIVE: CASE EVENT DATE: 20150508
